FAERS Safety Report 7797628-8 (Version None)
Quarter: 2011Q4

REPORT INFORMATION
  Report Type: 
  Country: None (occurrence: None)
  Receive Date: 20111003
  Receipt Date: 20110915
  Transmission Date: 20120403
  Serious: Yes (Other)
  Sender: FDA-Public Use
  Company Number: 2011SP037777

PATIENT
  Age: 46 Year
  Sex: Female
  Weight: 53 kg

DRUGS (1)
  1. BETAMETHASONE SODIUM PHOSPHATE [Suspect]
     Indication: SEASONAL ALLERGY
     Dosage: IV
     Route: 042
     Dates: start: 20110602, end: 20110602

REACTIONS (2)
  - INJECTION SITE NECROSIS [None]
  - WRONG TECHNIQUE IN DRUG USAGE PROCESS [None]
